FAERS Safety Report 9244938 (Version 3)
Quarter: 2013Q3

REPORT INFORMATION
  Report Type: Spontaneous
  Country: JP (occurrence: JP)
  Receive Date: 20130422
  Receipt Date: 20130710
  Transmission Date: 20140515
  Serious: Yes (Other)
  Sender: FDA-Public Use
  Company Number: JP-JNJFOC-20130407730

PATIENT
  Age: 69 Year
  Sex: Female

DRUGS (11)
  1. GOLIMUMAB [Suspect]
     Indication: RHEUMATOID ARTHRITIS
     Route: 058
     Dates: start: 20120208, end: 20120307
  2. RHEUMATREX [Suspect]
     Indication: PRODUCT USED FOR UNKNOWN INDICATION
     Route: 048
  3. PREDONINE [Suspect]
     Indication: PRODUCT USED FOR UNKNOWN INDICATION
     Route: 048
  4. BLOPRESS [Concomitant]
     Route: 048
  5. GLACTIV [Concomitant]
     Route: 048
  6. CLOSTRIDIUM BUTYRICUM [Concomitant]
     Route: 048
  7. FOLIAMIN [Concomitant]
     Route: 065
  8. CYTOTEC [Concomitant]
     Route: 048
  9. EVISTA [Concomitant]
     Route: 048
  10. WARFARIN POTASSIUM [Concomitant]
     Route: 048
  11. AMLODIN [Concomitant]
     Route: 048

REACTIONS (1)
  - Pneumonia bacterial [Recovered/Resolved]
